FAERS Safety Report 13336080 (Version 1)
Quarter: 2017Q1

REPORT INFORMATION
  Report Type: Spontaneous
  Country: US (occurrence: US)
  Receive Date: 20170314
  Receipt Date: 20170314
  Transmission Date: 20170428
  Serious: Yes (Other)
  Sender: FDA-Public Use
  Company Number: US-BAYER-2017-040772

PATIENT
  Sex: Female
  Weight: 63 kg

DRUGS (4)
  1. TRECID [Concomitant]
     Dosage: UNK
  2. BAYER LOW DOSE [Suspect]
     Active Substance: ASPIRIN
     Dosage: 4 DF, QD
     Route: 048
     Dates: start: 20170117
  3. LASIX [Concomitant]
     Active Substance: FUROSEMIDE
  4. BAYER LOW DOSE [Suspect]
     Active Substance: ASPIRIN
     Dosage: UNK
     Dates: start: 2015, end: 2016

REACTIONS (3)
  - Dyspepsia [Unknown]
  - Tinnitus [Unknown]
  - Gastrointestinal ulcer [Unknown]
